FAERS Safety Report 11325010 (Version 1)
Quarter: 2015Q3

REPORT INFORMATION
  Report Type: Report from Study
  Country: CA (occurrence: CA)
  Receive Date: 20150730
  Receipt Date: 20150730
  Transmission Date: 20151125
  Serious: Yes (Hospitalization, Other)
  Sender: FDA-Public Use
  Company Number: CA-REGENERON PHARMACEUTICALS, INC.-2015-11125

PATIENT

DRUGS (1)
  1. EYLEA [Suspect]
     Active Substance: AFLIBERCEPT
     Indication: NEOVASCULAR AGE-RELATED MACULAR DEGENERATION
     Dosage: UNK, 1ST INJECTION
     Route: 031
     Dates: start: 20150330, end: 20150330

REACTIONS (1)
  - Eye infection bacterial [Not Recovered/Not Resolved]

NARRATIVE: CASE EVENT DATE: 20150401
